FAERS Safety Report 12256375 (Version 2)
Quarter: 2016Q2

REPORT INFORMATION
  Report Type: Report from Study
  Country: BR (occurrence: BR)
  Receive Date: 20160412
  Receipt Date: 20160509
  Transmission Date: 20160815
  Serious: No
  Sender: FDA-Public Use
  Company Number: PHHY2016BR047832

PATIENT
  Sex: Female
  Weight: 54 kg

DRUGS (1)
  1. EXJADE [Suspect]
     Active Substance: DEFERASIROX
     Indication: SICKLE CELL ANAEMIA
     Dosage: 20 MG/KG (2 DF OF 500 MG), QD
     Route: 048

REACTIONS (2)
  - Paranoia [Unknown]
  - Hallucination, auditory [Unknown]
